FAERS Safety Report 19271254 (Version 1)
Quarter: 2021Q2

REPORT INFORMATION
  Report Type: Spontaneous
  Country: US (occurrence: US)
  Receive Date: 20210518
  Receipt Date: 20210518
  Transmission Date: 20210717
  Serious: Yes (Hospitalization, Other)
  Sender: FDA-Public Use
  Company Number: US-NANJING KING-FRIEND BIOCHEMICAL PHARMACEUTICAL CO. LTD.-2021NKF00045

PATIENT
  Age: 65 Year
  Sex: Female
  Weight: 65.77 kg

DRUGS (2)
  1. ENOXAPARIN SODIUM. [Suspect]
     Active Substance: ENOXAPARIN SODIUM
     Dosage: 40 MG, 1X/DAY FOR 4 DAYS
     Route: 058
     Dates: start: 20210327, end: 20210330
  2. ENOXAPARIN SODIUM. [Suspect]
     Active Substance: ENOXAPARIN SODIUM
     Dosage: UNK

REACTIONS (10)
  - Gastrointestinal erosion [Unknown]
  - Diarrhoea [Recovered/Resolved]
  - Gastric ulcer [Unknown]
  - Decreased appetite [Recovering/Resolving]
  - Therapeutic product effect increased [Unknown]
  - Gastrointestinal inflammation [Unknown]
  - Pain [Recovering/Resolving]
  - Gastric mucosa erythema [Unknown]
  - Headache [Recovering/Resolving]
  - Gastrointestinal haemorrhage [Recovered/Resolved]

NARRATIVE: CASE EVENT DATE: 20210329
